FAERS Safety Report 9602562 (Version 2)
Quarter: 2013Q4

REPORT INFORMATION
  Report Type: Spontaneous
  Country: JP (occurrence: JP)
  Receive Date: 20131007
  Receipt Date: 20131023
  Transmission Date: 20140711
  Serious: Yes (Other)
  Sender: FDA-Public Use
  Company Number: JP-PFIZER INC-2013283700

PATIENT
  Age: 82 Year
  Sex: Female

DRUGS (6)
  1. LIPITOR [Suspect]
     Indication: HYPERCHOLESTEROLAEMIA
     Dosage: 10 MG, 1X/DAY
     Route: 048
     Dates: start: 20130701, end: 20130926
  2. PLAVIX [Suspect]
     Dosage: 75 MG, DAILY
     Route: 048
     Dates: start: 20130701
  3. PARIET [Concomitant]
     Dosage: UNK
     Dates: start: 20130701
  4. BAYASPIRIN [Concomitant]
     Dosage: UNK
     Dates: start: 20130701
  5. HOCHUUEKKITOU [Concomitant]
     Dosage: UNK
     Route: 048
     Dates: start: 20130807, end: 20130903
  6. URSO [Concomitant]
     Indication: HEPATIC FUNCTION ABNORMAL
     Dosage: 150 MG, DAILY
     Route: 048
     Dates: start: 2013

REACTIONS (2)
  - Hepatic function abnormal [Recovered/Resolved]
  - Dermatitis allergic [Recovered/Resolved]
